FAERS Safety Report 8262236-1 (Version None)
Quarter: 2012Q2

REPORT INFORMATION
  Report Type: 
  Country: None (occurrence: None)
  Receive Date: 20120402
  Receipt Date: 20120321
  Transmission Date: 20120825
  Serious: Yes (Death, Hospitalization)
  Sender: FDA-Public Use
  Company Number: UTC-015778

PATIENT
  Age: 42 Year
  Sex: Female

DRUGS (2)
  1. REMODULIN [Suspect]
     Dosage: INTRAVENOUS
  2. DIURETICS (DIURETICS) [Concomitant]

REACTIONS (7)
  - DIARRHOEA [None]
  - DIALYSIS [None]
  - DEHYDRATION [None]
  - VOMITING [None]
  - DEPRESSION [None]
  - HYPOPHAGIA [None]
  - GENERAL PHYSICAL HEALTH DETERIORATION [None]
